FAERS Safety Report 4550388-6 (Version None)
Quarter: 2004Q4

REPORT INFORMATION
  Report Type: 
  Country: None (occurrence: None)
  Receive Date: 20041227
  Receipt Date: 20040920
  Transmission Date: 20050328
  Serious: No
  Sender: FDA-Public Use
  Company Number: US092220

PATIENT
  Age: 82 Year
  Sex: Female

DRUGS (6)
  1. ARANESP [Suspect]
     Indication: RENAL FAILURE CHRONIC
     Dosage: 40 MCG, 1IN 1 MONTHS, SC
     Route: 058
     Dates: start: 20040301
  2. INSULIN [Concomitant]
  3. DONEPEZIL HCL [Concomitant]
  4. ATENOLOL [Concomitant]
  5. FUROSEMIDE [Concomitant]
  6. METROPOLOL [Concomitant]

REACTIONS (1)
  - INJECTION SITE REACTION [None]
